FAERS Safety Report 20993436 (Version 1)
Quarter: 2022Q2

REPORT INFORMATION
  Report Type: Spontaneous
  Country: US (occurrence: None)
  Receive Date: 20220621
  Receipt Date: 20220621
  Transmission Date: 20220720
  Serious: Yes (Hospitalization, Disabling, Other)
  Sender: FDA-Public Use
  Company Number: None

PATIENT
  Age: 92 Year
  Sex: Female
  Weight: 46.35 kg

DRUGS (15)
  1. BEVACIZUMAB [Suspect]
     Active Substance: BEVACIZUMAB
     Indication: Eye disorder
     Dates: start: 20220608
  2. AMLODIPINE [Concomitant]
     Active Substance: AMLODIPINE BESYLATE
  3. SPIRONOLACTONE [Concomitant]
     Active Substance: SPIRONOLACTONE
  4. LATANOPROST [Concomitant]
     Active Substance: LATANOPROST
  5. rispiradone [Concomitant]
  6. MIRTAZAPINE [Concomitant]
     Active Substance: MIRTAZAPINE
  7. ALBUTEROL [Concomitant]
     Active Substance: ALBUTEROL
  8. budnesonide [Concomitant]
  9. FAMOTIDINE [Concomitant]
     Active Substance: FAMOTIDINE
  10. AZELASTINE [Concomitant]
     Active Substance: AZELASTINE
  11. PROLIA [Concomitant]
     Active Substance: DENOSUMAB
  12. CRANBERRY [Concomitant]
     Active Substance: CRANBERRY
  13. MINERALS\VITAMINS [Concomitant]
     Active Substance: MINERALS\VITAMINS
  14. VITAMIN D3 [Concomitant]
     Active Substance: CHOLECALCIFEROL
  15. ASPIRIN [Concomitant]
     Active Substance: ASPIRIN

REACTIONS (9)
  - Anxiety [None]
  - Insomnia [None]
  - Abdominal discomfort [None]
  - Diarrhoea [None]
  - Blood pressure decreased [None]
  - Cerebrovascular accident [None]
  - Seizure [None]
  - Vascular dementia [None]
  - Blood pressure increased [None]

NARRATIVE: CASE EVENT DATE: 20220608
